FAERS Safety Report 8497933-6 (Version None)
Quarter: 2012Q3

REPORT INFORMATION
  Report Type: 
  Country: None (occurrence: None)
  Receive Date: 20120709
  Receipt Date: 20120618
  Transmission Date: 20120928
  Serious: No
  Sender: FDA-Public Use
  Company Number: US-AMGEN-USASP2011015617

PATIENT
  Age: 68 Year
  Sex: Female
  Weight: 73.016 kg

DRUGS (7)
  1. PREDNISONE [Suspect]
     Indication: RHEUMATOID ARTHRITIS
     Dosage: 5 MG, QD
     Route: 048
     Dates: start: 20070101
  2. HYDROXYCHLOROQUINE SULFATE [Suspect]
     Indication: RHEUMATOID ARTHRITIS
     Dosage: 200 MG, BID
     Route: 048
     Dates: start: 20090901
  3. HUMIRA [Suspect]
     Indication: RHEUMATOID ARTHRITIS
     Dosage: 40 MG, 2 TIMES/WK
     Dates: start: 20110401
  4. AMITIZA [Concomitant]
     Indication: CONSTIPATION
     Dosage: 24 MUG, BID
     Route: 048
  5. ENBREL [Suspect]
     Indication: RHEUMATOID ARTHRITIS
     Dosage: 50 MG, QWK
     Dates: start: 20110301
  6. DILAUDID [Concomitant]
     Indication: PAIN
     Dosage: 4 MG, PRN
     Route: 048
  7. METHOTREXATE [Suspect]
     Indication: RHEUMATOID ARTHRITIS
     Dosage: 20 MG, QWK
     Route: 058
     Dates: start: 20090901

REACTIONS (3)
  - INJECTION SITE PAIN [None]
  - INCREASED TENDENCY TO BRUISE [None]
  - CONTUSION [None]
